FAERS Safety Report 5177852-3 (Version None)
Quarter: 2006Q4

REPORT INFORMATION
  Report Type: 
  Country: None (occurrence: None)
  Receive Date: 20061208
  Receipt Date: 20061128
  Transmission Date: 20070319
  Serious: Yes (Hospitalization)
  Sender: FDA-Public Use
  Company Number: 2006147130

PATIENT
  Age: 35 Year
  Sex: Female
  Weight: 85 kg

DRUGS (5)
  1. SOLU-MEDROL [Suspect]
     Indication: ACUTE MYELOID LEUKAEMIA
     Dosage: INTRAVENOUS
     Route: 042
  2. CYTARABINE [Suspect]
     Indication: ACUTE MYELOID LEUKAEMIA
     Dosage: 4 G (2 IN 1 D), INTRAVENOUS
     Route: 042
     Dates: start: 20060811, end: 20060815
  3. MITOXANTRONE [Suspect]
     Indication: ACUTE MYELOID LEUKAEMIA
     Dosage: 24 MG (24 MG), INTRAVENOUS
     Route: 042
     Dates: start: 20060811, end: 20060813
  4. DEXAMETHASONE TAB [Suspect]
     Indication: ACUTE MYELOID LEUKAEMIA
     Dosage: INTRAVENOUS
     Route: 042
  5. MYLOTARG [Suspect]
     Indication: ACUTE MYELOID LEUKAEMIA
     Dosage: 18 MG, INTRAVENOUS
     Route: 042
     Dates: start: 20060814, end: 20060814

REACTIONS (2)
  - NEUTROPENIA [None]
  - THROMBOCYTOPENIA [None]
